FAERS Safety Report 7056061-7 (Version None)
Quarter: 2010Q4

REPORT INFORMATION
  Report Type: 
  Country: None (occurrence: None)
  Receive Date: 20101021
  Receipt Date: 20101015
  Transmission Date: 20110411
  Serious: Yes (Hospitalization)
  Sender: FDA-Public Use
  Company Number: Z0005031A

PATIENT
  Sex: Female
  Weight: 70 kg

DRUGS (6)
  1. PAZOPANIB [Suspect]
     Dosage: 800MG PER DAY
     Route: 048
     Dates: start: 20100709
  2. FEMANEST [Concomitant]
     Indication: HORMONE REPLACEMENT THERAPY
     Dosage: 1TAB PER DAY
     Route: 048
     Dates: start: 20091204, end: 20100722
  3. CENTYL [Concomitant]
     Indication: HYPERTENSION
     Dosage: 2.5MG PER DAY
     Route: 048
     Dates: start: 20100716
  4. PANTOLOC [Concomitant]
     Indication: GASTRITIS PROPHYLAXIS
     Dosage: 20MG PER DAY
     Route: 048
     Dates: start: 20100725
  5. LINK [Concomitant]
     Indication: GASTRITIS PROPHYLAXIS
     Dosage: 1500MG AS REQUIRED
     Route: 048
     Dates: start: 20100725, end: 20100806
  6. TEMESTA [Concomitant]
     Dosage: 1MG AS REQUIRED
     Route: 048
     Dates: start: 20100723, end: 20100806

REACTIONS (2)
  - HEADACHE [None]
  - TRANSVERSE SINUS THROMBOSIS [None]
